FAERS Safety Report 5917570-4 (Version None)
Quarter: 2008Q4

REPORT INFORMATION
  Report Type: 
  Country: None (occurrence: None)
  Receive Date: 20081010
  Receipt Date: 20081010
  Transmission Date: 20090506
  Serious: Yes (Life-Threatening)
  Sender: FDA-Public Use
  Company Number: None

PATIENT
  Age: 40 Year
  Sex: Female
  Weight: 56.6996 kg

DRUGS (1)
  1. ROBITUSSIN COUGH, 4 FL. OZ.  WYETH CONSUMER HEALTH [Suspect]
     Indication: COUGH
     Dosage: 2 TSP EVERY 6 HOURS ORAL
     Route: 048
     Dates: start: 20081008, end: 20081009

REACTIONS (6)
  - CONVULSION [None]
  - DRUG WITHDRAWAL SYNDROME [None]
  - HEADACHE [None]
  - MUSCLE SPASMS [None]
  - NAUSEA [None]
  - VOMITING [None]
